FAERS Safety Report 7550468-7 (Version None)
Quarter: 2011Q2

REPORT INFORMATION
  Report Type: 
  Country: None (occurrence: None)
  Receive Date: 20110615
  Receipt Date: 20110610
  Transmission Date: 20111010
  Serious: Yes (Other)
  Sender: FDA-Public Use
  Company Number: DE-MERCK-1106DEU00059

PATIENT
  Age: 59 Year
  Sex: Female

DRUGS (3)
  1. CORTISONE [Concomitant]
     Route: 065
  2. ZOLEDRONIC ACID [Suspect]
     Route: 042
     Dates: start: 20060328, end: 20080801
  3. FOSAMAX [Suspect]
     Route: 048
     Dates: start: 20080801, end: 20100601

REACTIONS (3)
  - OSTEONECROSIS [None]
  - OSTEONECROSIS OF JAW [None]
  - FISTULA [None]
